FAERS Safety Report 5668753-2 (Version None)
Quarter: 2008Q1

REPORT INFORMATION
  Report Type: 
  Country: None (occurrence: None)
  Receive Date: 20080312
  Receipt Date: 20080312
  Transmission Date: 20080703
  Serious: Yes (Hospitalization)
  Sender: FDA-Public Use
  Company Number: None

PATIENT
  Sex: Female
  Weight: 75 kg

DRUGS (1)
  1. CYTARABINE [Suspect]
     Dosage: 5.4 MG

REACTIONS (3)
  - MENORRHAGIA [None]
  - PYREXIA [None]
  - THROMBOCYTOPENIA [None]
